FAERS Safety Report 9676211 (Version 2)
Quarter: 2013Q4

REPORT INFORMATION
  Report Type: Spontaneous
  Country: IT (occurrence: IT)
  Receive Date: 20131107
  Receipt Date: 20131127
  Transmission Date: 20140711
  Serious: Yes (Other)
  Sender: FDA-Public Use
  Company Number: IT-ELI_LILLY_AND_COMPANY-IT201310008840

PATIENT
  Sex: Female

DRUGS (1)
  1. FORSTEO [Suspect]
     Indication: PRODUCT USED FOR UNKNOWN INDICATION
     Dosage: 50 ?G/KG, CYCLICAL
     Route: 058
     Dates: start: 20130801, end: 20131028

REACTIONS (5)
  - Diverticulum [Unknown]
  - Nausea [Unknown]
  - Vomiting [Unknown]
  - Overdose [Unknown]
  - Inappropriate schedule of drug administration [Unknown]
